FAERS Safety Report 18985448 (Version 1)
Quarter: 2021Q1

REPORT INFORMATION
  Report Type: Spontaneous
  Country: CA (occurrence: CA)
  Receive Date: 20210309
  Receipt Date: 20210309
  Transmission Date: 20210420
  Serious: Yes (Hospitalization, Other)
  Sender: FDA-Public Use
  Company Number: CA-ABBVIE-21K-028-3801397-00

PATIENT
  Age: 47 Year
  Sex: Male
  Weight: 114 kg

DRUGS (8)
  1. PREDNISONE. [Concomitant]
     Active Substance: PREDNISONE
     Indication: PRODUCT USED FOR UNKNOWN INDICATION
  2. INFLECTRA [Suspect]
     Active Substance: INFLIXIMAB-DYYB
     Dosage: 0,2,6 WEEKS EVERY 8 WEEKS
     Route: 042
     Dates: start: 20200915
  3. INFLECTRA [Suspect]
     Active Substance: INFLIXIMAB-DYYB
     Dosage: 0,2,6 WEEKS EVERY 8 WEEKS
     Route: 042
     Dates: start: 20201028
  4. CALCIUM [Concomitant]
     Active Substance: CALCIUM
     Indication: PRODUCT USED FOR UNKNOWN INDICATION
  5. HUMIRA [Suspect]
     Active Substance: ADALIMUMAB
     Indication: CROHN^S DISEASE
     Route: 058
  6. INFLECTRA [Suspect]
     Active Substance: INFLIXIMAB-DYYB
     Indication: CROHN^S DISEASE
     Dosage: 0,2,6 WEEKS EVERY 8 WEEKS
     Route: 042
     Dates: start: 20200824
  7. VITAMIN D [ERGOCALCIFEROL] [Concomitant]
     Active Substance: ERGOCALCIFEROL
     Indication: PRODUCT USED FOR UNKNOWN INDICATION
  8. IMURAN [Concomitant]
     Active Substance: AZATHIOPRINE
     Indication: PRODUCT USED FOR UNKNOWN INDICATION
     Dates: start: 20200730

REACTIONS (5)
  - Therapeutic product effect decreased [Unknown]
  - Nausea [Unknown]
  - Arthropathy [Recovering/Resolving]
  - Small intestinal obstruction [Unknown]
  - Scar [Unknown]

NARRATIVE: CASE EVENT DATE: 202012
